FAERS Safety Report 5771031-4 (Version None)
Quarter: 2008Q2

REPORT INFORMATION
  Report Type: 
  Country: None (occurrence: None)
  Receive Date: 20080613
  Receipt Date: 20080523
  Transmission Date: 20081010
  Serious: No
  Sender: FDA-Public Use
  Company Number: US-ABBOTT-08P-163-0453534-00

PATIENT
  Age: 41 Year
  Sex: Female

DRUGS (1)
  1. HUMIRA [Suspect]
     Indication: DRUG USE FOR UNKNOWN INDICATION
     Dates: start: 20071001

REACTIONS (4)
  - INJECTION SITE LACERATION [None]
  - INJECTION SITE REACTION [None]
  - INJECTION SITE URTICARIA [None]
  - UNDERDOSE [None]
